FAERS Safety Report 21902723 (Version 1)
Quarter: 2023Q1

REPORT INFORMATION
  Report Type: Report from Study
  Country: US (occurrence: None)
  Receive Date: 20230124
  Receipt Date: 20230124
  Transmission Date: 20230417
  Serious: Yes (Hospitalization)
  Sender: FDA-Public Use
  Company Number: 2023A015511

PATIENT
  Sex: Male
  Weight: 88.2 kg

DRUGS (1)
  1. CALQUENCE [Suspect]
     Active Substance: ACALABRUTINIB
     Indication: Chronic lymphocytic leukaemia
     Route: 048

REACTIONS (4)
  - Hypotension [Unknown]
  - Renal impairment [Unknown]
  - Gastrooesophageal reflux disease [Unknown]
  - Pain [Unknown]
